FAERS Safety Report 18081304 (Version 1)
Quarter: 2020Q3

REPORT INFORMATION
  Report Type: Report from Study
  Country: ES (occurrence: ES)
  Receive Date: 20200728
  Receipt Date: 20200728
  Transmission Date: 20201103
  Serious: Yes (Other)
  Sender: FDA-Public Use
  Company Number: ES-MYLANLABS-2020M1067184

PATIENT
  Age: 70 Year
  Sex: Male

DRUGS (5)
  1. ENTECAVIR. [Suspect]
     Active Substance: ENTECAVIR
     Indication: ANTIVIRAL PROPHYLAXIS
     Dosage: 0.5 MG AL DIA VIA ORAL
     Route: 048
     Dates: start: 201812, end: 202002
  2. PREDNISONA [Concomitant]
     Active Substance: PREDNISONE
     Indication: PEMPHIGOID
     Dosage: 5 MG AL DIA VIA ORAL
     Route: 048
     Dates: start: 2015, end: 2020
  3. EUTIROX [Concomitant]
     Active Substance: LEVOTHYROXINE SODIUM
     Indication: HYPOTHYROIDISM
     Dosage: 100 MICROGRAM, QD
     Route: 048
     Dates: start: 2015, end: 2020
  4. OMEPRAZOL                          /00661201/ [Concomitant]
     Active Substance: OMEPRAZOLE
     Indication: PROPHYLAXIS AGAINST GASTROINTESTINAL ULCER
     Dosage: 20 MILLIGRAM, QD
     Route: 048
     Dates: start: 20131125, end: 20180618
  5. RITUXIMAB. [Suspect]
     Active Substance: RITUXIMAB
     Indication: PEMPHIGOID
     Dosage: 375 MG/M2, IV INYECCI?N SEMANAL X 4 SEMANAS.
     Route: 042
     Dates: start: 20181218, end: 201902

REACTIONS (1)
  - Hypersensitivity vasculitis [Recovered/Resolved]

NARRATIVE: CASE EVENT DATE: 20190122
